FAERS Safety Report 10401691 (Version 1)
Quarter: 2014Q3

REPORT INFORMATION
  Report Type: Spontaneous
  Country: GB (occurrence: None)
  Receive Date: 20140819
  Receipt Date: 20140819
  Transmission Date: 20150326
  Serious: Yes (Other)
  Sender: FDA-Public Use
  Company Number: AUR-APL-2014-08228

PATIENT
  Age: 63 Year
  Sex: Female
  Weight: 63 kg

DRUGS (3)
  1. DIPROBASE /01132701/ (CETOMACROGOL, CETOSTEARYL ALCOHOL, PARAFFIN, LIQUID, WHITE SOFT PARAFFIN) 05/08/2014 TO 06/05/2014 [Concomitant]
  2. CHLORAMPHENICOL [Concomitant]
     Active Substance: CHLORAMPHENICOL
  3. AMLODIPINE [Suspect]
     Active Substance: AMLODIPINE BESYLATE
     Indication: PRODUCT USED FOR UNKNOWN INDICATION
     Dates: start: 20140225

REACTIONS (1)
  - Joint swelling [None]

NARRATIVE: CASE EVENT DATE: 20140716
